FAERS Safety Report 7141930-X (Version None)
Quarter: 2010Q4

REPORT INFORMATION
  Report Type: 
  Country: None (occurrence: None)
  Receive Date: 20101117
  Receipt Date: 20100804
  Transmission Date: 20110411
  Serious: No
  Sender: FDA-Public Use
  Company Number: WAES 1008USA00669

PATIENT
  Sex: 0

DRUGS (1)
  1. ISENTRESS [Suspect]
     Dosage: /PO
     Route: 048

REACTIONS (1)
  - DEPRESSION [None]
